FAERS Safety Report 4696218-3 (Version None)
Quarter: 2005Q2

REPORT INFORMATION
  Report Type: 
  Country: None (occurrence: None)
  Receive Date: 20050621
  Receipt Date: 20050606
  Transmission Date: 20051028
  Serious: Yes (Other)
  Sender: FDA-Public Use
  Company Number: 2005AC00878

PATIENT
  Age: 61 Year
  Sex: Female

DRUGS (4)
  1. LIDOCAINE [Suspect]
     Indication: FACIAL PALSY
     Route: 053
  2. MEPIVACAINE HCL [Suspect]
     Indication: FACIAL PALSY
     Route: 053
  3. MECOBALAMINE [Concomitant]
  4. ADENOSINE TRIPHOSPHATE [Concomitant]

REACTIONS (2)
  - HEADACHE [None]
  - HYPERTENSION [None]
